FAERS Safety Report 23165658 (Version 2)
Quarter: 2023Q4

REPORT INFORMATION
  Report Type: Spontaneous
  Country: CN (occurrence: CN)
  Receive Date: 20231109
  Receipt Date: 20231205
  Transmission Date: 20240109
  Serious: Yes (Other)
  Sender: FDA-Public Use
  Company Number: CN-BAYER-2023A160566

PATIENT
  Age: 32 Year
  Sex: Female

DRUGS (1)
  1. YAZ [Suspect]
     Active Substance: DROSPIRENONE\ETHINYL ESTRADIOL
     Indication: Vaginal haemorrhage
     Dosage: 1 DF, QD
     Route: 048
     Dates: start: 20231031

REACTIONS (10)
  - Hypersensitivity [None]
  - Asthenia [None]
  - Vomiting [None]
  - Tachypnoea [None]
  - Heart rate increased [None]
  - Chest discomfort [None]
  - Hypoaesthesia [None]
  - Hypoaesthesia oral [None]
  - Dysstasia [None]
  - Product use in unapproved indication [None]

NARRATIVE: CASE EVENT DATE: 20231031
